FAERS Safety Report 6516929-4 (Version None)
Quarter: 2010Q1

REPORT INFORMATION
  Report Type: 
  Country: None (occurrence: None)
  Receive Date: 20091223
  Receipt Date: 20091211
  Transmission Date: 20100710
  Serious: Yes (Death)
  Sender: FDA-Public Use
  Company Number: US-JNJFOC-20071001791

PATIENT
  Sex: Female
  Weight: 7.71 kg

DRUGS (8)
  1. CHILDREN'S TYLENOL PLUS COLD [Suspect]
     Indication: PYREXIA
  2. CHILDREN'S TYLENOL PLUS COLD [Suspect]
     Indication: BRONCHOPNEUMONIA
  3. CARBAXEFED DM RF [Suspect]
     Indication: PYREXIA
  4. CARBAXEFED DM RF [Suspect]
     Indication: BRONCHOPNEUMONIA
  5. AMOXICILLIN [Suspect]
     Indication: BRONCHOPNEUMONIA
  6. TYLENOL [Concomitant]
  7. MOTRIN [Concomitant]
  8. PEDIALYTE [Concomitant]

REACTIONS (5)
  - ACCIDENTAL OVERDOSE [None]
  - DRUG ADMINISTRATION ERROR [None]
  - DRUG TOXICITY [None]
  - LISTLESS [None]
  - SCREAMING [None]
